FAERS Safety Report 7024813-5 (Version None)
Quarter: 2010Q4

REPORT INFORMATION
  Report Type: 
  Country: None (occurrence: None)
  Receive Date: 20101001
  Receipt Date: 20100924
  Transmission Date: 20110411
  Serious: Yes (Other)
  Sender: FDA-Public Use
  Company Number: US-JNJFOC-20100907951

PATIENT
  Sex: Female
  Weight: 67.9 kg

DRUGS (5)
  1. TOPAMAX [Suspect]
     Indication: HEADACHE
     Route: 048
  2. LAMICTAL [Concomitant]
     Indication: BIPOLAR DISORDER
     Route: 048
  3. SIMVASTATIN [Concomitant]
     Indication: BLOOD CHOLESTEROL
     Route: 048
  4. LYRICA [Concomitant]
     Indication: PAIN
     Route: 048
  5. TRAZODONE HCL [Concomitant]
     Indication: SLEEP DISORDER
     Route: 048

REACTIONS (6)
  - AMAUROSIS FUGAX [None]
  - APHASIA [None]
  - CONFUSIONAL STATE [None]
  - DIPLOPIA [None]
  - DYSARTHRIA [None]
  - VISUAL IMPAIRMENT [None]
